FAERS Safety Report 15689858 (Version 4)
Quarter: 2018Q4

REPORT INFORMATION
  Report Type: Spontaneous
  Country: US (occurrence: US)
  Receive Date: 20181205
  Receipt Date: 20181224
  Transmission Date: 20190205
  Serious: Yes (Other)
  Sender: FDA-Public Use
  Company Number: US-PFIZER INC-2017215100

PATIENT
  Age: 4 Year
  Sex: Female

DRUGS (2)
  1. GENOTROPIN [Suspect]
     Active Substance: SOMATROPIN
     Indication: BLOOD GROWTH HORMONE ABNORMAL
     Dosage: 0.6 MG, DAILY
     Dates: start: 20160304
  2. DDAVP [Concomitant]
     Active Substance: DESMOPRESSIN ACETATE
     Indication: DIABETES INSIPIDUS
     Dosage: 1.6 MG, 2X/DAY

REACTIONS (11)
  - Blood alkaline phosphatase increased [Unknown]
  - Product dose omission [Unknown]
  - Alanine aminotransferase increased [Unknown]
  - Blood sodium increased [Unknown]
  - Wrong technique in device usage process [Unknown]
  - Blood creatinine decreased [Unknown]
  - Diabetes insipidus [Unknown]
  - Blood chloride increased [Unknown]
  - Blood calcium increased [Unknown]
  - Blood bilirubin decreased [Unknown]
  - Aspartate aminotransferase increased [Unknown]
